FAERS Safety Report 9580428 (Version 1)
Quarter: 2013Q3

REPORT INFORMATION
  Report Type: Spontaneous
  Country: US (occurrence: None)
  Receive Date: 20130916
  Receipt Date: 20130916
  Transmission Date: 20140515
  Serious: Yes (Other)
  Sender: FDA-Public Use
  Company Number: JPI-P-023897

PATIENT
  Age: 52 Year
  Sex: Female
  Weight: 90.72 kg

DRUGS (6)
  1. XYREM (500 MILLIGRAM/MILLILITERS, SOLUTION) (SODIUM OXYBATE) [Suspect]
     Indication: CATAPLEXY
     Dosage: 6 GM (3 GM, 2 IN 1 D)
     Route: 048
     Dates: start: 20120803, end: 20120807
  2. DEXTROAMPHETAMINE [Concomitant]
  3. DESMETHYLVENLAFAXINE [Concomitant]
  4. LEVOMEFOLIC ACID [Concomitant]
  5. ESOMEPRAZOLE [Concomitant]
  6. AMPHETAMINE, DEXTROAMPHETAMINE MIXED SALTS [Concomitant]

REACTIONS (8)
  - Blood pressure increased [None]
  - Condition aggravated [None]
  - Migraine [None]
  - Somnolence [None]
  - Feeling abnormal [None]
  - Memory impairment [None]
  - Headache [None]
  - Oedema [None]
